FAERS Safety Report 7985643-0 (Version None)
Quarter: 2011Q4

REPORT INFORMATION
  Report Type: 
  Country: None (occurrence: None)
  Receive Date: 20111216
  Receipt Date: 20111214
  Transmission Date: 20120403
  Serious: No
  Sender: FDA-Public Use
  Company Number: US-PFIZER INC-2011304811

PATIENT
  Sex: Female
  Weight: 61.678 kg

DRUGS (3)
  1. AZITHROMYCIN [Suspect]
     Indication: BRONCHITIS
     Dosage: 250 MG, 1X/DAY
     Route: 048
     Dates: start: 20111129, end: 20111203
  2. PROZAC [Concomitant]
     Indication: DEPRESSION
     Dosage: UNK
     Dates: start: 20110201
  3. SYNTHROID [Concomitant]
     Indication: HYPOTHYROIDISM
     Dosage: UNK
     Dates: start: 20020101

REACTIONS (6)
  - BLOOD CHOLESTEROL INCREASED [None]
  - PARAESTHESIA [None]
  - DIARRHOEA [None]
  - PRURITUS [None]
  - HIGH DENSITY LIPOPROTEIN INCREASED [None]
  - ABDOMINAL DISTENSION [None]
